FAERS Safety Report 7139705 (Version 3)
Quarter: 2013Q3

REPORT INFORMATION
  Report Type: Report from Study
  Country: NL (occurrence: NL)
  Receive Date: 20091005
  Receipt Date: 20130806
  Transmission Date: 20140515
  Serious: Yes (Death, Hospitalization)
  Sender: FDA-Public Use
  Company Number: NL-ROCHE-657990

PATIENT
  Age: 76 Year
  Sex: 0
  Weight: 85 kg

DRUGS (5)
  1. CAPECITABINE [Suspect]
     Indication: GASTRIC CANCER
     Dosage: LAST DOSE PRIOR TO SAE: 21 SEP 2009, DAY 1-14 EVERY 3 WEEKS, AS PER PROTCOL
     Route: 048
     Dates: start: 20090910, end: 20090918
  2. BISOPROLOL [Concomitant]
     Route: 048
  3. RANITIDINE [Concomitant]
     Route: 048
  4. HYDROCHLOROTHIAZIDE [Concomitant]
     Route: 048
     Dates: start: 2009, end: 20090921
  5. PERINDOPRIL [Concomitant]
     Route: 048
     Dates: start: 2009, end: 20090921

REACTIONS (4)
  - Death [Fatal]
  - Mucosal inflammation [Not Recovered/Not Resolved]
  - Febrile neutropenia [Recovered/Resolved]
  - Diarrhoea [Recovered/Resolved]
